FAERS Safety Report 8444789-3 (Version None)
Quarter: 2012Q2

REPORT INFORMATION
  Report Type: 
  Country: None (occurrence: None)
  Receive Date: 20120323
  Receipt Date: 20111111
  Transmission Date: 20120825
  Serious: Yes (Hospitalization, Disabling)
  Sender: FDA-Public Use
  Company Number: 163-21880-11082166

PATIENT
  Age: 69 Year
  Sex: Male
  Weight: 107.9561 kg

DRUGS (12)
  1. TRICOR (FENOFIBRATE)(UNKNOWN) [Concomitant]
  2. MPRAZOLE (OMEPRAZOLE)(UNKNOWN) [Concomitant]
  3. WARFARIN SODIUM [Concomitant]
  4. BENADRYL (DIPHENHYDRAMINE)(UNKNOWN) [Concomitant]
  5. ISOSORBIDE (ISOSORBIDE)(UNKNOWN) [Concomitant]
  6. PRAVASTATIN [Concomitant]
  7. REVLIMID [Suspect]
     Indication: MULTIPLE MYELOMA
     Dosage: 5 MG, DAILY X 21 DAYS/OFF 7 DAYS, PO, 10 MG, PER WEEK, PO, 5 MG, TWICE WEEKLY, PO
     Route: 048
     Dates: start: 20110714, end: 20110101
  8. CARVEDILOL [Concomitant]
  9. BUMETANIDE (BUMETANIDE)(UNKNOWN) [Concomitant]
  10. COUMADIN [Concomitant]
  11. CALCITRIOL/D (CALCITRIOL)(UNKNOWN) [Concomitant]
  12. HYDRALAZINE (HYDRALAZINE)(UNKNOWN) [Concomitant]

REACTIONS (2)
  - NEUTROPENIA [None]
  - BLOOD CREATININE INCREASED [None]
